FAERS Safety Report 14121339 (Version 1)
Quarter: 2017Q4

REPORT INFORMATION
  Report Type: Spontaneous
  Country: FR (occurrence: FR)
  Receive Date: 20171024
  Receipt Date: 20171024
  Transmission Date: 20180321
  Serious: Yes (Other)
  Sender: FDA-Public Use
  Company Number: FR-PFIZER INC-2017452101

PATIENT
  Age: 88 Year
  Sex: Female

DRUGS (2)
  1. FRAGMINE [Suspect]
     Active Substance: DALTEPARIN SODIUM
     Dosage: 10000 IU, 1X/DAY
  2. FRAGMINE [Suspect]
     Active Substance: DALTEPARIN SODIUM
     Dosage: 12500 IU, UNK

REACTIONS (3)
  - Thrombosis [Unknown]
  - Incorrect dose administered [Unknown]
  - Drug prescribing error [Unknown]
